FAERS Safety Report 5044243-5 (Version None)
Quarter: 2006Q2

REPORT INFORMATION
  Report Type: 
  Country: None (occurrence: None)
  Receive Date: 20060629
  Receipt Date: 20060615
  Transmission Date: 20061013
  Serious: Yes (Other)
  Sender: FDA-Public Use
  Company Number: JP-2005-025131

PATIENT
  Age: 56 Year
  Sex: Male
  Weight: 63 kg

DRUGS (19)
  1. FLUDARA [Suspect]
     Indication: CHRONIC LYMPHOCYTIC LEUKAEMIA
     Dosage: 33.2 MG, CYCLE X 5D, INTRAVENOUS
     Route: 042
     Dates: start: 20050304, end: 20050308
  2. FLUDARA [Suspect]
     Indication: CHRONIC LYMPHOCYTIC LEUKAEMIA
     Dosage: 33.2 MG, CYCLE X 5D, INTRAVENOUS
     Route: 042
     Dates: start: 20050521, end: 20050525
  3. FLUDARA [Suspect]
     Indication: CHRONIC LYMPHOCYTIC LEUKAEMIA
     Dosage: 33.2 MG, CYCLE X 5D, INTRAVENOUS
     Route: 042
     Dates: start: 20050618, end: 20050622
  4. PREDONINE TABLET [Concomitant]
  5. MEROPEN (MEROPENEM) [Concomitant]
  6. EXACIN              (ISEPAMICIN SULFATE) [Concomitant]
  7. CEFTAZIDIME [Concomitant]
  8. MINOCYCLINE HCL [Concomitant]
  9. SULPERAZON                  (CEFOPERAZONE SODIUM, SULBACTAM SODIUM) [Concomitant]
  10. CEFPIRAMIDE SODIUM [Concomitant]
  11. DIFLUCAN                    (FLUCONAZOLE) CAPSULE [Concomitant]
  12. FUNGUARD                        (MICAFUNGIN SODIUM) [Concomitant]
  13. ITRACONAZOLE [Concomitant]
  14. FLUCONAZOLE  (PRODIF) (FLUCONAZOLE) [Concomitant]
  15. CRAVIT                         (LEVOFLOXACIN) TABLET [Concomitant]
  16. TARGOCID [Concomitant]
  17. VANCOMYCIN [Concomitant]
  18. ZANTAC [Concomitant]
  19. ALLOPURINOL [Concomitant]

REACTIONS (7)
  - ASCITES [None]
  - BONE MARROW FAILURE [None]
  - DISEASE PROGRESSION [None]
  - ILEUS [None]
  - INTESTINAL ADENOCARCINOMA [None]
  - NEUTROPHIL COUNT DECREASED [None]
  - SPINAL CORD COMPRESSION [None]
